FAERS Safety Report 4591722-0 (Version None)
Quarter: 2005Q1

REPORT INFORMATION
  Report Type: 
  Country: None (occurrence: None)
  Receive Date: 20050223
  Receipt Date: 20050223
  Transmission Date: 20050727
  Serious: No
  Sender: FDA-Public Use
  Company Number: None

PATIENT
  Age: 49 Year
  Sex: Male

DRUGS (1)
  1. SERTRALINE HCL [Suspect]
     Dosage: 150 MG

REACTIONS (1)
  - HYPONATRAEMIA [None]
